FAERS Safety Report 10262265 (Version 1)
Quarter: 2014Q2

REPORT INFORMATION
  Report Type: Spontaneous
  Country: US (occurrence: None)
  Receive Date: 20140624
  Receipt Date: 20140624
  Transmission Date: 20141212
  Serious: No
  Sender: FDA-Public Use
  Company Number: None

PATIENT
  Age: 65 Year
  Sex: Male
  Weight: 81.65 kg

DRUGS (1)
  1. RAPAFLO [Suspect]
     Indication: PROSTATOMEGALY
     Dosage: 1 CAPSULE, ONCE DAILY, TAKEN BY MOUTH
     Route: 048
     Dates: start: 20140613, end: 20140619

REACTIONS (2)
  - Product quality issue [None]
  - Product quality issue [None]
